FAERS Safety Report 6575499-5 (Version None)
Quarter: 2010Q1

REPORT INFORMATION
  Report Type: 
  Country: None (occurrence: None)
  Receive Date: 20100208
  Receipt Date: 20100208
  Transmission Date: 20100710
  Serious: Yes (Life-Threatening)
  Sender: FDA-Public Use
  Company Number: None

PATIENT
  Age: 34 Year
  Sex: Male
  Weight: 95.2554 kg

DRUGS (1)
  1. GEODON [Suspect]
     Indication: SCHIZOAFFECTIVE DISORDER
     Dates: start: 20100125, end: 20100205

REACTIONS (4)
  - BURNING SENSATION [None]
  - DYSPHAGIA [None]
  - LUNG DISORDER [None]
  - PHARYNGEAL OEDEMA [None]
